FAERS Safety Report 4885983-8 (Version None)
Quarter: 2006Q1

REPORT INFORMATION
  Report Type: 
  Country: None (occurrence: None)
  Receive Date: 20060118
  Receipt Date: 20060118
  Transmission Date: 20060701
  Serious: Yes (Life-Threatening)
  Sender: FDA-Public Use
  Company Number: None

PATIENT
  Age: 74 Year
  Sex: Male
  Weight: 104 kg

DRUGS (7)
  1. DEXMEDETOMIDENE [Suspect]
     Indication: VENTRICULAR FAILURE
     Dosage: 0.2-0.7 MCG/KG/HR IVI PR
     Route: 051
     Dates: start: 20051113, end: 20051114
  2. HEPARIN [Concomitant]
  3. FENTANYL [Concomitant]
  4. PROPOFOL [Concomitant]
  5. CEFECPIME [Concomitant]
  6. GENTAMICIN [Concomitant]
  7. METRONIDAZOLE [Concomitant]

REACTIONS (1)
  - VENTRICULAR FAILURE [None]
